FAERS Safety Report 21172128 (Version 1)
Quarter: 2022Q3

REPORT INFORMATION
  Report Type: Spontaneous
  Country: US (occurrence: None)
  Receive Date: 20220803
  Receipt Date: 20220803
  Transmission Date: 20221026
  Serious: Yes (Hospitalization)
  Sender: FDA-Public Use
  Company Number: None

PATIENT
  Age: 63 Year
  Sex: Male
  Weight: 77.4 kg

DRUGS (1)
  1. MAGNESIUM CITRATE ORAL CHERRY FLAVOR [Suspect]
     Active Substance: MAGNESIUM CITRATE
     Indication: Colonoscopy
     Dosage: OTHER QUANTITY : 10 OUNCE(S);?FREQUENCY : AS NEEDED;?
     Route: 048
     Dates: start: 20220718, end: 20220718

REACTIONS (7)
  - Abdominal pain [None]
  - Urinary retention [None]
  - Pyrexia [None]
  - Hypotension [None]
  - Delirium [None]
  - Sepsis [None]
  - Recalled product administered [None]

NARRATIVE: CASE EVENT DATE: 20220718
